FAERS Safety Report 12239851 (Version 3)
Quarter: 2016Q2

REPORT INFORMATION
  Report Type: Report from Study
  Country: US (occurrence: US)
  Receive Date: 20160405
  Receipt Date: 20160415
  Transmission Date: 20160815
  Serious: Yes (Congenital Anomaly, Other)
  Sender: FDA-Public Use
  Company Number: US-VIIV HEALTHCARE LIMITED-US2016GSK045406

PATIENT
  Sex: Male

DRUGS (10)
  1. PREZISTA [Suspect]
     Active Substance: DARUNAVIR ETHANOLATE
     Dosage: 1600 MG/DAY
     Route: 064
     Dates: start: 20160128
  2. EDURANT [Suspect]
     Active Substance: RILPIVIRINE HYDROCHLORIDE
     Indication: HIV INFECTION
     Dosage: 25 MG PER DAY
     Route: 064
     Dates: start: 20150715, end: 20160121
  3. NORVIR [Suspect]
     Active Substance: RITONAVIR
     Indication: HIV INFECTION
     Dosage: 200 MG PER DAY
     Route: 064
     Dates: start: 20150715
  4. DOLUTEGRAVIR [Suspect]
     Active Substance: DOLUTEGRAVIR
     Indication: HIV INFECTION
     Dosage: 100 MG PER DAY
     Route: 064
     Dates: start: 20150715
  5. ZIDOVUDINE. [Suspect]
     Active Substance: ZIDOVUDINE
     Indication: HIV INFECTION
     Dosage: 2 MG/KG/HR
     Route: 064
     Dates: start: 20160311, end: 20160311
  6. DAPSONE. [Concomitant]
     Active Substance: DAPSONE
  7. ZIDOVUDINE. [Suspect]
     Active Substance: ZIDOVUDINE
     Dosage: 1 MG/KG/HR
     Route: 064
     Dates: start: 20160311, end: 20160311
  8. FERROUS SULFATE. [Concomitant]
     Active Substance: FERROUS SULFATE
  9. PREZISTA [Suspect]
     Active Substance: DARUNAVIR ETHANOLATE
     Indication: HIV INFECTION
     Dosage: 1200 MG/DAY
     Route: 064
     Dates: start: 20150715, end: 20160128
  10. TRUVADA [Suspect]
     Active Substance: EMTRICITABINE\TENOFOVIR DISOPROXIL FUMARATE
     Indication: HIV INFECTION
     Dosage: 500 MG PER DAY
     Route: 064
     Dates: start: 20160121

REACTIONS (4)
  - Foetal exposure during pregnancy [Unknown]
  - Pyelocaliectasis [Unknown]
  - Congenital megaureter [Unknown]
  - Congenital hydronephrosis [Unknown]

NARRATIVE: CASE EVENT DATE: 201603
